FAERS Safety Report 17736799 (Version 1)
Quarter: 2020Q2

REPORT INFORMATION
  Report Type: Spontaneous
  Country: CA (occurrence: CA)
  Receive Date: 20200502
  Receipt Date: 20200502
  Transmission Date: 20200714
  Serious: Yes (Other)
  Sender: FDA-Public Use
  Company Number: CA-AUROBINDO-AUR-APL-2020-020992

PATIENT
  Age: 64 Year
  Sex: Male
  Weight: 55 kg

DRUGS (2)
  1. TADALAFIL TABLET [Suspect]
     Active Substance: TADALAFIL
     Indication: PULMONARY ARTERIAL HYPERTENSION
     Dosage: 40 MILLIGRAM
     Route: 065
  2. TADALAFIL TABLET [Suspect]
     Active Substance: TADALAFIL
     Indication: CONNECTIVE TISSUE DISORDER

REACTIONS (3)
  - Heart rate increased [Not Recovered/Not Resolved]
  - Dyspnoea [Not Recovered/Not Resolved]
  - Asthenia [Not Recovered/Not Resolved]
